FAERS Safety Report 19787994 (Version 2)
Quarter: 2021Q3

REPORT INFORMATION
  Report Type: Spontaneous
  Country: US (occurrence: US)
  Receive Date: 20210903
  Receipt Date: 20210903
  Transmission Date: 20211014
  Serious: Yes (Death)
  Sender: FDA-Public Use
  Company Number: US-PFIZER INC-202101132417

PATIENT
  Age: 38 Year
  Sex: Female

DRUGS (16)
  1. GABAPENTIN. [Suspect]
     Active Substance: GABAPENTIN
     Dosage: UNK
  2. PREGABALIN. [Suspect]
     Active Substance: PREGABALIN
     Dosage: 100 MG, DAILY
  3. DICLAZEPAM [Suspect]
     Active Substance: 2-CHLORODIAZEPAM
     Dosage: UNK
  4. OMEPRAZOLE. [Suspect]
     Active Substance: OMEPRAZOLE
     Dosage: UNK
  5. NICOTINE. [Suspect]
     Active Substance: NICOTINE
     Dosage: UNK
  6. METFORMIN [Suspect]
     Active Substance: METFORMIN HYDROCHLORIDE
     Dosage: UNK
  7. ETIZOLAM [Suspect]
     Active Substance: ETIZOLAM
     Dosage: UNK
  8. CITALOPRAM [Suspect]
     Active Substance: CITALOPRAM HYDROBROMIDE
     Dosage: UNK
  9. LOPERAMIDE [Suspect]
     Active Substance: LOPERAMIDE
     Dosage: UNK
  10. MORPHINE [Suspect]
     Active Substance: MORPHINE
     Dosage: UNK
  11. INSULIN [Suspect]
     Active Substance: INSULIN NOS
     Dosage: UNK
  12. LAUDANOSINE [Suspect]
     Active Substance: ATRACURIUM
     Dosage: UNK
  13. NALOXONE HCL [Suspect]
     Active Substance: NALOXONE HYDROCHLORIDE
     Dosage: UNK
  14. CAFFEINE. [Suspect]
     Active Substance: CAFFEINE
     Dosage: UNK
  15. ALPRAZOLAM. [Suspect]
     Active Substance: ALPRAZOLAM
     Dosage: 0.5 MG, DAILY
  16. THEBAINE [Suspect]
     Active Substance: THEBAINE
     Dosage: UNK

REACTIONS (1)
  - Toxicity to various agents [Fatal]
